FAERS Safety Report 15385377 (Version 1)
Quarter: 2018Q3

REPORT INFORMATION
  Report Type: Spontaneous
  Country: DE (occurrence: DE)
  Receive Date: 20180914
  Receipt Date: 20180914
  Transmission Date: 20181010
  Serious: Yes (Hospitalization, Other)
  Sender: FDA-Public Use
  Company Number: PHHY2018DE096753

PATIENT
  Age: 75 Year
  Sex: Female
  Weight: 50 kg

DRUGS (17)
  1. CARBOPLATIN. [Suspect]
     Active Substance: CARBOPLATIN
     Dosage: 325 MG, Q3W
     Route: 042
     Dates: start: 20160104
  2. RANITIDINE. [Concomitant]
     Active Substance: RANITIDINE
     Indication: PRODUCT USED FOR UNKNOWN INDICATION
     Route: 042
  3. PACLITAXEL. [Suspect]
     Active Substance: PACLITAXEL
     Dosage: 280 MG, Q3W
     Route: 042
     Dates: start: 20151211
  4. PACLITAXEL. [Suspect]
     Active Substance: PACLITAXEL
     Dosage: 280 MG, Q3W
     Route: 042
     Dates: start: 20160125
  5. AVASTIN [Suspect]
     Active Substance: BEVACIZUMAB
     Indication: OVARIAN CANCER
     Dosage: 780 MG, Q3W
     Route: 042
     Dates: start: 20151211
  6. PACLITAXEL. [Suspect]
     Active Substance: PACLITAXEL
     Dosage: 280 MG, Q3W
     Route: 042
     Dates: start: 20160216
  7. FENISTIL [Concomitant]
     Active Substance: DIMETHINDENE
     Indication: PRODUCT USED FOR UNKNOWN INDICATION
     Route: 042
  8. CARBOPLATIN. [Suspect]
     Active Substance: CARBOPLATIN
     Dosage: 374 MG, Q3W
     Route: 042
     Dates: start: 20160216
  9. AVASTIN [Suspect]
     Active Substance: BEVACIZUMAB
     Dosage: 280 MG, Q3W
     Route: 042
     Dates: start: 20160216
  10. CARBOPLATIN. [Suspect]
     Active Substance: CARBOPLATIN
     Indication: OVARIAN CANCER
     Dosage: 374 MG, Q3W
     Route: 042
     Dates: start: 20151120
  11. BELOC ZOK [Concomitant]
     Active Substance: METOPROLOL SUCCINATE
     Indication: HYPERTENSION
     Route: 048
  12. FORTECORTIN [Concomitant]
     Active Substance: DEXAMETHASONE
     Indication: PRODUCT USED FOR UNKNOWN INDICATION
     Dosage: 20 MG, UNK
     Route: 042
  13. PACLITAXEL. [Suspect]
     Active Substance: PACLITAXEL
     Indication: OVARIAN CANCER
     Dosage: 280 MG, Q3W
     Route: 042
     Dates: start: 20151120
  14. PACLITAXEL. [Suspect]
     Active Substance: PACLITAXEL
     Dosage: 280 MG, Q3W
     Route: 042
     Dates: start: 20160104
  15. CARBOPLATIN. [Suspect]
     Active Substance: CARBOPLATIN
     Dosage: 374 MG, Q3W
     Route: 042
     Dates: start: 20160125
  16. CARBOPLATIN. [Suspect]
     Active Substance: CARBOPLATIN
     Dosage: 374 MG, Q3W
     Route: 042
     Dates: start: 20151211
  17. AVASTIN [Suspect]
     Active Substance: BEVACIZUMAB
     Dosage: 780 MG, Q3W
     Route: 042
     Dates: start: 20160704

REACTIONS (6)
  - Sleep disorder [Unknown]
  - Asthenia [Recovered/Resolved]
  - Hypertension [Recovered/Resolved]
  - General physical health deterioration [Recovered/Resolved]
  - Hypertensive crisis [Recovered/Resolved]
  - Hypertension [Recovered/Resolved]

NARRATIVE: CASE EVENT DATE: 20151120
